FAERS Safety Report 24731918 (Version 2)
Quarter: 2025Q1

REPORT INFORMATION
  Report Type: Report from Study
  Country: CN (occurrence: CN)
  Receive Date: 20241213
  Receipt Date: 20250109
  Transmission Date: 20250408
  Serious: Yes (Hospitalization, Other)
  Sender: PFIZER
  Company Number: CN-TAKEDA-2021TUS081222

PATIENT
  Age: 77 Year
  Sex: Male
  Weight: 63.2 kg

DRUGS (15)
  1. BRENTUXIMAB VEDOTIN [Suspect]
     Active Substance: BRENTUXIMAB VEDOTIN
     Indication: Hodgkin^s disease
     Route: 041
     Dates: start: 20210814
  2. BRENTUXIMAB VEDOTIN [Suspect]
     Active Substance: BRENTUXIMAB VEDOTIN
     Route: 041
     Dates: start: 20210916
  3. BRENTUXIMAB VEDOTIN [Suspect]
     Active Substance: BRENTUXIMAB VEDOTIN
     Route: 041
     Dates: start: 20211111
  4. EPIRUBICIN HYDROCHLORIDE [Suspect]
     Active Substance: EPIRUBICIN HYDROCHLORIDE
     Indication: Lymphoma
     Dosage: 60 MILLIGRAM, QD
     Route: 042
     Dates: start: 20210814
  5. VINDESINE [Suspect]
     Active Substance: VINDESINE
     Indication: Lymphoma
     Dosage: 4 MILLIGRAM, QD
     Route: 042
     Dates: start: 20210814
  6. DACARBAZINE [Suspect]
     Active Substance: DACARBAZINE
     Indication: Lymphoma
     Dosage: 600 MILLIGRAM, QD
     Route: 042
     Dates: start: 20210814
  7. ACYCLOVIR [Concomitant]
     Active Substance: ACYCLOVIR
     Indication: Chemotherapy side effect prophylaxis
     Dosage: UNK UNK, BID
     Route: 048
     Dates: start: 202108
  8. ACYCLOVIR [Concomitant]
     Active Substance: ACYCLOVIR
     Indication: Infection prophylaxis
  9. LEUCOGEN [Concomitant]
     Active Substance: LEUCOGEN
     Indication: Prophylaxis
     Dosage: UNK UNK, TID
     Route: 048
     Dates: start: 202108
  10. CEFACLOR [Concomitant]
     Active Substance: CEFACLOR
     Indication: Infection prophylaxis
     Dosage: UNK UNK, BID
     Route: 048
     Dates: start: 202108
  11. SULFAMETHOXAZOLE [Concomitant]
     Active Substance: SULFAMETHOXAZOLE
     Indication: Prophylaxis
     Dosage: UNK UNK, QD
     Route: 048
     Dates: start: 202108
  12. VONOPRAZAN FUMARATE [Concomitant]
     Active Substance: VONOPRAZAN FUMARATE
     Indication: Gastrointestinal disorder prophylaxis
     Dosage: UNK UNK, QD
     Route: 048
     Dates: start: 2021
  13. CLOSTRIDIUM BUTYRICUM [Concomitant]
     Indication: Prophylaxis
     Dosage: UNK UNK, TID
     Route: 048
     Dates: start: 2021
  14. MIYA [Concomitant]
     Indication: Prophylaxis
     Route: 048
     Dates: start: 2021
  15. NIFEDIPINE [Concomitant]
     Active Substance: NIFEDIPINE
     Indication: Hypertension
     Dosage: UNK UNK, TID
     Route: 048
     Dates: start: 20190322, end: 202305

REACTIONS (4)
  - Second primary malignancy [Recovered/Resolved]
  - Gastric cancer [Recovered/Resolved]
  - Blood triglycerides increased [Not Recovered/Not Resolved]
  - Blood potassium decreased [Not Recovered/Not Resolved]

NARRATIVE: CASE EVENT DATE: 20211110
